FAERS Safety Report 5510007-9 (Version None)
Quarter: 2007Q4

REPORT INFORMATION
  Report Type: 
  Country: None (occurrence: None)
  Receive Date: 20071108
  Receipt Date: 20070618
  Transmission Date: 20080405
  Serious: No
  Sender: FDA-Public Use
  Company Number: US-ABBOTT-07P-163-0371675-00

PATIENT
  Sex: Male
  Weight: 74.91 kg

DRUGS (5)
  1. BIAXIN [Suspect]
     Indication: BACTERIAL INFECTION
     Route: 048
     Dates: start: 20070507, end: 20070511
  2. BIAXIN [Suspect]
     Indication: CHLAMYDIAL INFECTION
  3. BIAXIN [Suspect]
  4. BIAXIN [Suspect]
  5. BIAXIN [Suspect]
     Indication: PROSTATITIS

REACTIONS (1)
  - ERYTHEMA NODOSUM [None]
